FAERS Safety Report 6240477-2 (Version None)
Quarter: 2009Q2

REPORT INFORMATION
  Report Type: 
  Country: None (occurrence: None)
  Receive Date: 20090623
  Receipt Date: 20090313
  Transmission Date: 20091009
  Serious: No
  Sender: FDA-Public Use
  Company Number: US-ASTRAZENECA-2009UW06601

PATIENT
  Sex: Female

DRUGS (6)
  1. PULMICORT FLEXHALER [Suspect]
     Indication: ASTHMA
     Route: 055
     Dates: start: 20090309
  2. TOPROL-XL [Concomitant]
     Route: 048
  3. PREDNISONE TAB [Concomitant]
  4. BIAXIN [Concomitant]
  5. VYTORIN [Concomitant]
  6. PROTONIX [Concomitant]

REACTIONS (4)
  - COUGH [None]
  - DRUG INEFFECTIVE [None]
  - PALPITATIONS [None]
  - WHEEZING [None]
